FAERS Safety Report 8814297 (Version 2)
Quarter: 2012Q4

REPORT INFORMATION
  Report Type: 
  Country: GB (occurrence: GB)
  Receive Date: 20120928
  Receipt Date: 20121019
  Transmission Date: 20130627
  Serious: Yes (Death, Hospitalization)
  Sender: FDA-Public Use
  Company Number: GB-BAYER-2012-096998

PATIENT
  Age: 59 Year
  Sex: Male
  Weight: 85 kg

DRUGS (9)
  1. ACETYLSALICYLIC ACID (} 100 MG) [Suspect]
     Indication: ACUTE CORONARY SYNDROME
     Dosage: 75 mg, QD
     Route: 048
  2. DABIGATRAN ETEXILATE [Suspect]
     Indication: TACHYARRHYTHMIA
     Dosage: 150 mg, BID
     Route: 048
     Dates: start: 20120705
  3. AMIODARONE [Concomitant]
     Indication: ARRHYTHMIA
     Dosage: 100 mg, QD
     Route: 048
  4. EPLERENONE [Concomitant]
     Indication: CARDIAC FAILURE
     Dosage: 50 mg, QD
     Route: 048
  5. FUROSEMIDE [Concomitant]
     Indication: CARDIAC FAILURE
     Dosage: 50 mg, QD
     Route: 048
  6. SERTRALINE [Concomitant]
     Indication: DEPRESSION
     Dosage: 50 mg, QD
     Route: 048
  7. ATORVASTATIN [Concomitant]
     Indication: BLOOD CHOLESTEROL ABNORMAL
     Dosage: 75 mg, QD
     Route: 048
  8. OMEPRAZOLE [Concomitant]
     Dosage: 20 mg, QD
     Route: 048
  9. RAMIPRIL [Concomitant]
     Indication: CARDIAC FAILURE
     Dosage: 10 mg, QD
     Route: 048

REACTIONS (6)
  - Mouth haemorrhage [Recovered/Resolved]
  - General physical health deterioration [Unknown]
  - Haematuria [Recovered/Resolved]
  - Renal impairment [Unknown]
  - Epistaxis [None]
  - Death [Fatal]
